FAERS Safety Report 14177261 (Version 2)
Quarter: 2017Q4

REPORT INFORMATION
  Report Type: Spontaneous
  Country: US (occurrence: US)
  Receive Date: 20171110
  Receipt Date: 20171123
  Transmission Date: 20180321
  Serious: Yes (Other)
  Sender: FDA-Public Use
  Company Number: US-VISTAPHARM, INC.-VER201711-001044

PATIENT
  Age: 63 Year
  Sex: Female

DRUGS (5)
  1. VORICONAZOLE. [Suspect]
     Active Substance: VORICONAZOLE
     Indication: PNEUMONIA FUNGAL
  2. PIPERACILLIN AND TAZOBACTAM [Concomitant]
     Active Substance: PIPERACILLIN SODIUM\TAZOBACTAM SODIUM
     Indication: PNEUMONIA FUNGAL
  3. OXYCODONE [Suspect]
     Active Substance: OXYCODONE
  4. OXYCODONE [Suspect]
     Active Substance: OXYCODONE
     Indication: CANCER PAIN
  5. VANCOMYCIN [Concomitant]
     Active Substance: VANCOMYCIN
     Indication: PNEUMONIA FUNGAL

REACTIONS (2)
  - Neurotoxicity [Unknown]
  - Drug interaction [Unknown]
